FAERS Safety Report 8300853-0 (Version None)
Quarter: 2012Q1

REPORT INFORMATION
  Report Type: 
  Country: None (occurrence: None)
  Receive Date: 20120326
  Receipt Date: 20110321
  Transmission Date: 20120608
  Serious: Yes (Hospitalization, Disabling)
  Sender: FDA-Public Use
  Company Number: PHHY2011US59793

PATIENT
  Age: 74 Year
  Sex: Male

DRUGS (14)
  1. FLUCONAZOLE [Concomitant]
  2. PLAVIX [Concomitant]
  3. SPIRONOLACTONE [Concomitant]
  4. TAMSULOSIN HCL [Concomitant]
  5. LANTUS [Concomitant]
  6. TASIGNA [Suspect]
     Indication: CHRONIC MYELOID LEUKAEMIA
     Dosage: 200 MG, BID, ORAL
     Route: 048
     Dates: start: 20100312
  7. CIPROFLOXACIN [Concomitant]
  8. SULFAMETHOPRIM (SULFAMETHOXAZOLE, TRIMETHOPRIM) [Concomitant]
  9. DOC-Q-LACE (DOCUSATE SODIUM) [Concomitant]
  10. HYDROCODONE BITARTRATE [Concomitant]
  11. LISINOPRIL [Concomitant]
  12. PHENAZOPYRIDINE (PHENAZOPYRIDINE) [Concomitant]
  13. FINASTERIDE [Concomitant]
  14. AMLODIPINE BESYLATE [Concomitant]

REACTIONS (4)
  - URINARY TRACT INFECTION BACTERIAL [None]
  - WALKING AID USER [None]
  - PNEUMONIA [None]
  - BACTERIAL INFECTION [None]
